FAERS Safety Report 9732870 (Version 2)
Quarter: 2015Q3

REPORT INFORMATION
  Report Type: Spontaneous
  Country: US (occurrence: US)
  Receive Date: 20131204
  Receipt Date: 20150804
  Transmission Date: 20151125
  Serious: No
  Sender: FDA-Public Use
  Company Number: US-GILEAD-2009-0021678

PATIENT
  Age: 65 Year
  Sex: Female
  Weight: 65.77 kg

DRUGS (15)
  1. PLAQUENIL [Concomitant]
     Active Substance: HYDROXYCHLOROQUINE SULFATE
  2. PILOCARPINE. [Concomitant]
     Active Substance: PILOCARPINE
  3. CALTRATE [Concomitant]
     Active Substance: CALCIUM CARBONATE
  4. REVATIO [Concomitant]
     Active Substance: SILDENAFIL CITRATE
  5. ALDACTONE [Concomitant]
     Active Substance: SPIRONOLACTONE
  6. SPIRIVA [Concomitant]
     Active Substance: TIOTROPIUM BROMIDE MONOHYDRATE
  7. LETAIRIS [Suspect]
     Active Substance: AMBRISENTAN
     Indication: PULMONARY ARTERIAL HYPERTENSION
     Route: 048
     Dates: start: 20090314
  8. PREDNISONE. [Concomitant]
     Active Substance: PREDNISONE
  9. PREVACID [Concomitant]
     Active Substance: LANSOPRAZOLE
  10. ACTIGALL [Concomitant]
     Active Substance: URSODIOL
  11. BUMEX [Concomitant]
     Active Substance: BUMETANIDE
  12. ALBUTEROL. [Concomitant]
     Active Substance: ALBUTEROL
  13. COUMADIN [Concomitant]
     Active Substance: WARFARIN SODIUM
  14. SYNTHROID [Concomitant]
     Active Substance: LEVOTHYROXINE SODIUM
  15. MULTIVITAMIN [Concomitant]
     Active Substance: VITAMINS

REACTIONS (4)
  - Paranasal sinus discomfort [Recovered/Resolved]
  - Malaise [Recovered/Resolved]
  - Headache [Recovered/Resolved]
  - Arthritis infective [Unknown]
